FAERS Safety Report 4589525-6 (Version None)
Quarter: 2005Q1

REPORT INFORMATION
  Report Type: 
  Country: None (occurrence: None)
  Receive Date: 20050216
  Receipt Date: 20050203
  Transmission Date: 20050727
  Serious: Yes (Life-Threatening)
  Sender: FDA-Public Use
  Company Number: MAG-2005-0000334

PATIENT
  Age: 58 Year
  Sex: Male

DRUGS (9)
  1. OXYCONTIN [Suspect]
     Indication: CANCER PAIN
     Dosage: 6 0 MG, DAILY, ORAL
     Route: 048
     Dates: start: 20050117, end: 20050117
  2. LOXONIN (LOXOPROFEN SODIUM) [Concomitant]
  3. DEPAS (ETIZOLAM) [Concomitant]
  4. TEGRETOL [Concomitant]
  5. SULFAMETHOXAZOLE + TRIMETHOPRIM [Concomitant]
  6. VEGETAMIN (PHENOBARBITAL, PROMETHAZINE HYDROCHLORIDE, CHLORPROMAZINE H [Concomitant]
  7. CARBENIN (PANIPENEM, BETAMIPRON) [Concomitant]
  8. SOLU-MEDROL [Concomitant]
  9. ANTIBACTERIALS FOR SYSTEMIC [Concomitant]

REACTIONS (1)
  - ANAPHYLACTIC SHOCK [None]
